FAERS Safety Report 4366430-1 (Version None)
Quarter: 2004Q2

REPORT INFORMATION
  Report Type: 
  Country: None (occurrence: None)
  Receive Date: 20040527
  Receipt Date: 20040319
  Transmission Date: 20050107
  Serious: Yes (Other)
  Sender: FDA-Public Use
  Company Number: US-BRISTOL-MYERS SQUIBB COMPANY-12538831

PATIENT
  Age: 73 Year
  Sex: Male

DRUGS (3)
  1. ERBITUX [Suspect]
     Indication: COLORECTAL CANCER METASTATIC
     Dosage: 250MG/M2=500MG; INTERRUPTED ON 11-MAR-2004, REDUCED DOSE 200MG/M2. RESTARTED ON 01-APR-2004.
     Route: 042
     Dates: start: 20040311, end: 20040311
  2. BENADRYL [Concomitant]
     Indication: PREMEDICATION
     Route: 042
     Dates: start: 20040311, end: 20040311
  3. DECADRON [Concomitant]
     Indication: PREMEDICATION
     Route: 042
     Dates: start: 20040311

REACTIONS (2)
  - DERMATITIS EXFOLIATIVE [None]
  - RASH [None]
